FAERS Safety Report 5526818-X (Version None)
Quarter: 2007Q4

REPORT INFORMATION
  Report Type: 
  Country: None (occurrence: None)
  Receive Date: 20071127
  Receipt Date: 20071119
  Transmission Date: 20080405
  Serious: Yes (Hospitalization)
  Sender: FDA-Public Use
  Company Number: DE-WYE-G00640207

PATIENT
  Sex: Male

DRUGS (49)
  1. SIROLIMUS [Suspect]
     Indication: PROPHYLAXIS AGAINST TRANSPLANT REJECTION
     Route: 048
     Dates: start: 20040819, end: 20040822
  2. SIROLIMUS [Suspect]
     Route: 048
     Dates: start: 20040822, end: 20040823
  3. SIROLIMUS [Suspect]
     Route: 048
     Dates: start: 20040828, end: 20040830
  4. SIROLIMUS [Suspect]
     Route: 048
     Dates: start: 20040904, end: 20040908
  5. SIROLIMUS [Suspect]
     Route: 048
     Dates: start: 20040909, end: 20040926
  6. SIROLIMUS [Suspect]
     Route: 048
     Dates: start: 20040927, end: 20040927
  7. SIROLIMUS [Suspect]
     Route: 048
     Dates: start: 20040928, end: 20041004
  8. SIROLIMUS [Suspect]
     Route: 048
     Dates: start: 20041005, end: 20041013
  9. SIROLIMUS [Suspect]
     Route: 048
     Dates: start: 20041016, end: 20041016
  10. SIROLIMUS [Suspect]
     Route: 048
     Dates: start: 20041022, end: 20041026
  11. MYCOPHENOLATE MOFETIL [Suspect]
     Indication: PROPHYLAXIS AGAINST TRANSPLANT REJECTION
     Route: 048
     Dates: start: 20040819, end: 20070826
  12. MYCOPHENOLATE MOFETIL [Suspect]
     Route: 048
     Dates: start: 20040827, end: 20040827
  13. MYCOPHENOLATE MOFETIL [Suspect]
     Route: 048
     Dates: start: 20040828, end: 20040828
  14. MYCOPHENOLATE MOFETIL [Suspect]
     Route: 048
     Dates: start: 20040829, end: 20040830
  15. MYCOPHENOLATE MOFETIL [Suspect]
     Route: 048
     Dates: start: 20040901, end: 20040901
  16. MYCOPHENOLATE MOFETIL [Suspect]
     Route: 048
     Dates: start: 20040902, end: 20040908
  17. MYCOPHENOLATE MOFETIL [Suspect]
     Route: 048
     Dates: start: 20040909, end: 20041004
  18. MYCOPHENOLATE MOFETIL [Suspect]
     Route: 048
     Dates: start: 20041005, end: 20041011
  19. MYCOPHENOLATE MOFETIL [Suspect]
     Route: 048
     Dates: start: 20041013, end: 20041017
  20. PREDNISOLONE [Suspect]
     Indication: PROPHYLAXIS AGAINST TRANSPLANT REJECTION
     Route: 042
     Dates: start: 20040819, end: 20040819
  21. PREDNISOLONE [Suspect]
     Route: 042
     Dates: start: 20040820, end: 20040820
  22. PREDNISOLONE [Suspect]
     Route: 042
     Dates: start: 20040821, end: 20040821
  23. PREDNISOLONE [Suspect]
     Route: 042
     Dates: start: 20040822, end: 20040822
  24. PREDNISOLONE [Suspect]
     Route: 042
     Dates: start: 20040823, end: 20040823
  25. PREDNISOLONE [Suspect]
     Route: 042
     Dates: start: 20040824, end: 20040824
  26. PREDNISOLONE [Suspect]
     Route: 042
     Dates: start: 20040826, end: 20040913
  27. PREDNISOLONE [Suspect]
     Route: 042
     Dates: start: 20040914, end: 20040919
  28. PREDNISOLONE [Suspect]
     Route: 042
     Dates: start: 20040920, end: 20040926
  29. PREDNISOLONE [Suspect]
     Route: 042
     Dates: start: 20040927, end: 20041004
  30. PREDNISOLONE [Suspect]
     Route: 042
     Dates: start: 20041005, end: 20041007
  31. PREDNISOLONE [Suspect]
     Route: 042
     Dates: start: 20041008, end: 20041010
  32. PREDNISOLONE [Suspect]
     Route: 042
     Dates: start: 20041011, end: 20041022
  33. PREDNISOLONE [Suspect]
     Route: 042
     Dates: start: 20041023, end: 20041028
  34. PREDNISOLONE [Suspect]
     Route: 042
     Dates: start: 20041029
  35. AMPHOTERICIN B [Concomitant]
  36. CEFUROXIME [Concomitant]
  37. DILTIAZEM [Concomitant]
  38. FUROSEMIDE [Concomitant]
  39. METOPROLOL TARTRATE [Concomitant]
  40. URAPIDIL [Concomitant]
  41. VALGANCICLOVIR HCL [Concomitant]
  42. AMLODIPINE [Concomitant]
  43. BISOPROLOL FUMARATE [Concomitant]
  44. DIHYDRALAZINE [Concomitant]
  45. PRIMAXIN [Concomitant]
  46. RAMIPRIL [Concomitant]
  47. ACETYLCYSTEINE [Concomitant]
  48. ZENAPAX [Suspect]
     Indication: PROPHYLAXIS AGAINST TRANSPLANT REJECTION
     Route: 042
     Dates: start: 20040819, end: 20040819
  49. ZENAPAX [Suspect]
     Route: 042
     Dates: start: 20040902, end: 20041012

REACTIONS (7)
  - ANAEMIA [None]
  - ARTERIAL HAEMORRHAGE [None]
  - HAEMATOMA INFECTION [None]
  - HYPOTENSION [None]
  - PANCYTOPENIA [None]
  - POST PROCEDURAL HAEMORRHAGE [None]
  - STAPHYLOCOCCAL INFECTION [None]
